FAERS Safety Report 22300288 (Version 1)
Quarter: 2023Q2

REPORT INFORMATION
  Report Type: Spontaneous
  Country: JP (occurrence: JP)
  Receive Date: 20230509
  Receipt Date: 20230509
  Transmission Date: 20230722
  Serious: Yes (Other)
  Sender: FDA-Public Use
  Company Number: JP-PFIZER INC-PV202300076866

PATIENT
  Age: 8 Year
  Sex: Male

DRUGS (2)
  1. METHOTREXATE SODIUM [Suspect]
     Active Substance: METHOTREXATE SODIUM
     Indication: Acute lymphocytic leukaemia
     Dosage: UNK (2G/M2 OR 5G/M2)
     Route: 037
  2. RITUXIMAB [Concomitant]
     Active Substance: RITUXIMAB
     Indication: Acute lymphocytic leukaemia
     Dosage: UNK

REACTIONS (1)
  - Leukoencephalopathy [Unknown]
